FAERS Safety Report 21364375 (Version 1)
Quarter: 2022Q3

REPORT INFORMATION
  Report Type: Spontaneous
  Country: US (occurrence: US)
  Receive Date: 20220922
  Receipt Date: 20220922
  Transmission Date: 20221027
  Serious: Yes (Other)
  Sender: FDA-Public Use
  Company Number: US-Blueprint Medicines Corporation-431

PATIENT
  Sex: Male

DRUGS (1)
  1. AYVAKIT [Suspect]
     Active Substance: AVAPRITINIB
     Indication: Systemic mastocytosis
     Route: 065
     Dates: start: 20220813

REACTIONS (8)
  - Platelet count decreased [Unknown]
  - Abdominal distension [Unknown]
  - Fluid retention [Unknown]
  - Joint swelling [Unknown]
  - Peripheral swelling [Unknown]
  - Swelling face [Unknown]
  - Lacrimation increased [Unknown]
  - Eosinophil count increased [Unknown]
